FAERS Safety Report 5824830-4 (Version None)
Quarter: 2008Q3

REPORT INFORMATION
  Report Type: 
  Country: None (occurrence: None)
  Receive Date: 20080728
  Receipt Date: 20080310
  Transmission Date: 20090109
  Serious: No
  Sender: FDA-Public Use
  Company Number: US-BOEHRINGER INGELHEIM GMBH, GERMANY-2007-BP-16590BP

PATIENT
  Sex: Male
  Weight: 136 kg

DRUGS (16)
  1. MIRAPEX [Suspect]
     Indication: PARKINSON'S DISEASE
     Dates: start: 20030522, end: 20060401
  2. LORAZEPAM [Concomitant]
     Dates: start: 20020128, end: 20030825
  3. ZESTRIL [Concomitant]
     Dates: start: 20010201
  4. ASPIRIN [Concomitant]
     Dates: start: 20030501
  5. PROZAC [Concomitant]
     Indication: DEPRESSION
     Dates: start: 20010201
  6. PROZAC [Concomitant]
     Dates: start: 20020128
  7. STRATTERA [Concomitant]
     Dates: start: 20030322, end: 20050528
  8. ZIAC [Concomitant]
     Dates: start: 20010101
  9. LOTREL [Concomitant]
     Dates: start: 20010101
  10. KLONOPIN [Concomitant]
     Indication: INSOMNIA
     Dates: start: 20030322
  11. KLONOPIN [Concomitant]
     Dates: start: 20030721, end: 20030724
  12. COLACE [Concomitant]
     Dates: start: 20021001
  13. KLOR-CON [Concomitant]
     Route: 048
     Dates: start: 20030215
  14. REMERON [Concomitant]
     Dates: start: 20020112
  15. REMERON [Concomitant]
     Dates: start: 20040723
  16. NEURONTIN [Concomitant]
     Dates: start: 20010101

REACTIONS (6)
  - ANXIETY [None]
  - DEPRESSION [None]
  - EMOTIONAL DISTRESS [None]
  - PAIN [None]
  - PATHOLOGICAL GAMBLING [None]
  - STRESS [None]
